FAERS Safety Report 11404885 (Version 5)
Quarter: 2015Q4

REPORT INFORMATION
  Report Type: Spontaneous
  Country: US (occurrence: US)
  Receive Date: 20150821
  Receipt Date: 20151014
  Transmission Date: 20160304
  Serious: Yes (Life-Threatening, Hospitalization, Other)
  Sender: FDA-Public Use
  Company Number: US-CELGENE-USA-2015072424

PATIENT
  Age: 60 Year
  Sex: Female
  Weight: 69.5 kg

DRUGS (11)
  1. CULTURELLE LACTO GG [Concomitant]
     Indication: CANDIDA INFECTION
     Route: 048
     Dates: start: 20150708
  2. ABRAXANE [Suspect]
     Active Substance: PACLITAXEL
     Indication: PANCREATIC CARCINOMA METASTATIC
     Route: 041
     Dates: start: 20150603, end: 20150618
  3. ABRAXANE [Suspect]
     Active Substance: PACLITAXEL
     Dosage: 1000 MILLIGRAM
     Route: 041
     Dates: start: 20150715
  4. BLINDED NECUPARANIB [Suspect]
     Active Substance: NECUPARANIB
     Indication: PANCREATIC CARCINOMA METASTATIC
     Route: 065
     Dates: start: 20150603, end: 20150707
  5. ABRAXANE [Suspect]
     Active Substance: PACLITAXEL
     Route: 041
     Dates: start: 20150701, end: 20150702
  6. GEMCITABINE [Suspect]
     Active Substance: GEMCITABINE\GEMCITABINE HYDROCHLORIDE
     Route: 065
     Dates: start: 20150715
  7. CEFTIN [Concomitant]
     Active Substance: CEFUROXIME AXETIL
     Indication: URINARY TRACT INFECTION
     Route: 048
     Dates: start: 20150703
  8. GEMCITABINE [Suspect]
     Active Substance: GEMCITABINE\GEMCITABINE HYDROCHLORIDE
     Indication: PANCREATIC CARCINOMA METASTATIC
     Route: 065
     Dates: start: 20150603, end: 20150618
  9. BLINDED NECUPARANIB [Suspect]
     Active Substance: NECUPARANIB
     Route: 065
     Dates: start: 20150629, end: 20150708
  10. GEMCITABINE [Suspect]
     Active Substance: GEMCITABINE\GEMCITABINE HYDROCHLORIDE
     Route: 065
     Dates: start: 20150701, end: 20150702
  11. BLINDED NECUPARANIB [Suspect]
     Active Substance: NECUPARANIB
     Route: 065
     Dates: start: 20150715

REACTIONS (2)
  - Bacteraemia [Recovered/Resolved]
  - Pleural effusion [Recovering/Resolving]

NARRATIVE: CASE EVENT DATE: 20150621
